FAERS Safety Report 18098369 (Version 5)
Quarter: 2020Q3

REPORT INFORMATION
  Report Type: Spontaneous
  Country: US (occurrence: US)
  Receive Date: 20200731
  Receipt Date: 20200824
  Transmission Date: 20201103
  Serious: Yes (Other)
  Sender: FDA-Public Use
  Company Number: US-PFIZER INC-2020289619

PATIENT
  Age: 66 Year
  Sex: Male
  Weight: 117.93 kg

DRUGS (3)
  1. LYRICA [Suspect]
     Active Substance: PREGABALIN
     Indication: DIABETES MELLITUS
     Dosage: 125 MG, 3X/DAY
     Route: 048
     Dates: start: 2020, end: 2020
  2. LYRICA [Suspect]
     Active Substance: PREGABALIN
     Indication: NEUROPATHY PERIPHERAL
     Dosage: 125 MG, 2X/DAY
     Route: 048
     Dates: start: 2020
  3. LYRICA [Suspect]
     Active Substance: PREGABALIN
     Indication: BACK PAIN
     Dosage: 150 MG, 3X/DAY
     Dates: start: 2019, end: 20200727

REACTIONS (6)
  - Weight increased [Unknown]
  - Dyspnoea [Recovering/Resolving]
  - Wrong strength [Unknown]
  - Dizziness [Recovered/Resolved]
  - Malaise [Unknown]
  - Fall [Recovered/Resolved]

NARRATIVE: CASE EVENT DATE: 2020
